FAERS Safety Report 8223840-X (Version None)
Quarter: 2012Q1

REPORT INFORMATION
  Report Type: 
  Country: None (occurrence: None)
  Receive Date: 20120321
  Receipt Date: 20120319
  Transmission Date: 20120608
  Serious: Yes (Death, Hospitalization)
  Sender: FDA-Public Use
  Company Number: US-SHIRE-ALL1-2012-00365

PATIENT
  Sex: Female

DRUGS (1)
  1. FIRAZYR [Suspect]
     Indication: HEREDITARY ANGIOEDEMA
     Dosage: UNK, AS REQ'D EVERY 6 HOURS UP TO 3 DOSES IN 24 HOURS
     Route: 058

REACTIONS (2)
  - ADVERSE EVENT [None]
  - DEATH [None]
